FAERS Safety Report 10374606 (Version 1)
Quarter: 2014Q3

REPORT INFORMATION
  Report Type: Spontaneous
  Country: PL (occurrence: PL)
  Receive Date: 20140811
  Receipt Date: 20140811
  Transmission Date: 20150326
  Serious: Yes (Hospitalization, Other)
  Sender: FDA-Public Use
  Company Number: PL-ABBVIE-14P-129-1269040-00

PATIENT
  Age: 34 Year
  Sex: Female
  Weight: 80 kg

DRUGS (8)
  1. METYPRED [Concomitant]
     Active Substance: METHYLPREDNISOLONE
     Indication: RHEUMATOID ARTHRITIS
     Dates: start: 20041115
  2. METYPRED [Concomitant]
     Active Substance: METHYLPREDNISOLONE
     Indication: RHEUMATOID FACTOR
  3. DICLAC [Concomitant]
     Active Substance: DICLOFENAC POTASSIUM
     Indication: RHEUMATOID FACTOR
  4. HUMIRA [Suspect]
     Active Substance: ADALIMUMAB
     Indication: RHEUMATOID ARTHRITIS
     Route: 058
     Dates: start: 20140211, end: 20140304
  5. DICLAC [Concomitant]
     Active Substance: DICLOFENAC POTASSIUM
     Indication: RHEUMATOID ARTHRITIS
     Dates: start: 20041115
  6. HUMIRA [Suspect]
     Active Substance: ADALIMUMAB
     Indication: RHEUMATOID FACTOR
  7. ARAVA [Concomitant]
     Active Substance: LEFLUNOMIDE
     Indication: RHEUMATOID FACTOR
  8. ARAVA [Concomitant]
     Active Substance: LEFLUNOMIDE
     Indication: RHEUMATOID ARTHRITIS
     Dates: start: 20110519, end: 20140304

REACTIONS (3)
  - Pyrexia [Unknown]
  - Genital tract inflammation [Unknown]
  - Pain [Unknown]

NARRATIVE: CASE EVENT DATE: 20140304
